FAERS Safety Report 4596278-4 (Version None)
Quarter: 2005Q1

REPORT INFORMATION
  Report Type: 
  Country: None (occurrence: None)
  Receive Date: 20050228
  Receipt Date: 20050216
  Transmission Date: 20050727
  Serious: Yes (Other)
  Sender: FDA-Public Use
  Company Number: 2005032719

PATIENT
  Age: 59 Year
  Sex: Female
  Weight: 68.0396 kg

DRUGS (4)
  1. BENADRYL ALLERGY SINUS HEADACHE (DIPHENHYDRAMINE, PARACETAMOL, PSEUDOE [Suspect]
     Indication: HYPERSENSITIVITY
     Dosage: 1 GELCAP PRN, ORAL
     Route: 048
     Dates: start: 20000101
  2. PROPRANOLOL [Concomitant]
  3. FUROSEMIDE [Concomitant]
  4. MACROGOL (MACROGOL) [Concomitant]

REACTIONS (2)
  - CATHETERISATION CARDIAC [None]
  - HEPATIC CYST [None]
